FAERS Safety Report 4811949-X (Version None)
Quarter: 2005Q4

REPORT INFORMATION
  Report Type: 
  Country: None (occurrence: None)
  Receive Date: 20051027
  Receipt Date: 20051027
  Transmission Date: 20060501
  Serious: Yes (Hospitalization)
  Sender: FDA-Public Use
  Company Number: None

PATIENT
  Age: 72 Year
  Sex: Male
  Weight: 101.6057 kg

DRUGS (1)
  1. AMOXICILLIN [Suspect]
     Indication: TOOTH EXTRACTION
     Dosage: 500MG   Q6H   PO
     Route: 048
     Dates: start: 20050701, end: 20050703

REACTIONS (2)
  - ANGIONEUROTIC OEDEMA [None]
  - RASH [None]
